FAERS Safety Report 4476899-X (Version None)
Quarter: 2004Q4

REPORT INFORMATION
  Report Type: 
  Country: None (occurrence: None)
  Receive Date: 20041013
  Receipt Date: 20041005
  Transmission Date: 20050328
  Serious: Yes (Hospitalization)
  Sender: FDA-Public Use
  Company Number: DE-2004-033043

PATIENT
  Age: 16 Year
  Sex: Female

DRUGS (1)
  1. MIRANOVA (21) (LEVONORGESTREL, ETHINYLESTRADIOL) COATED TABLET [Suspect]
     Dosage: ORAL
     Route: 048

REACTIONS (1)
  - PANCREATITIS [None]
